FAERS Safety Report 22965672 (Version 3)
Quarter: 2023Q4

REPORT INFORMATION
  Report Type: Report from Study
  Country: US (occurrence: US)
  Receive Date: 20230921
  Receipt Date: 20231222
  Transmission Date: 20240110
  Serious: Yes (Hospitalization)
  Sender: FDA-Public Use
  Company Number: US-INSMED-2023-01628-USAA

PATIENT
  Sex: Female

DRUGS (1)
  1. ARIKAYCE [Suspect]
     Active Substance: AMIKACIN
     Indication: Mycobacterium avium complex infection
     Dosage: 590 MILLIGRAM, QD
     Route: 055
     Dates: start: 20230501, end: 20230522

REACTIONS (8)
  - Atrial fibrillation [Unknown]
  - Hospitalisation [Unknown]
  - Adverse drug reaction [Unknown]
  - Aphonia [Not Recovered/Not Resolved]
  - Laryngitis [Not Recovered/Not Resolved]
  - Cough [Recovered/Resolved]
  - Cough [Recovering/Resolving]
  - Oropharyngeal discomfort [Unknown]

NARRATIVE: CASE EVENT DATE: 20230101
